FAERS Safety Report 7480093-8 (Version None)
Quarter: 2011Q2

REPORT INFORMATION
  Report Type: 
  Country: None (occurrence: None)
  Receive Date: 20110516
  Receipt Date: 20110505
  Transmission Date: 20111010
  Serious: Yes (Other)
  Sender: FDA-Public Use
  Company Number: US-BIOGENIDEC-2011BI016762

PATIENT
  Age: 30 Year
  Sex: Female

DRUGS (1)
  1. TYSABRI [Suspect]
     Indication: MULTIPLE SCLEROSIS
     Route: 042
     Dates: start: 20101011, end: 20110106

REACTIONS (9)
  - CYST [None]
  - FIBROMYALGIA [None]
  - FATIGUE [None]
  - ANXIETY [None]
  - RENAL CYST [None]
  - INTERVERTEBRAL DISC PROTRUSION [None]
  - OVARIAN CYST [None]
  - GASTRIC CYST [None]
  - PROGRESSIVE MULTIFOCAL LEUKOENCEPHALOPATHY [None]
